FAERS Safety Report 6669551-3 (Version None)
Quarter: 2010Q2

REPORT INFORMATION
  Report Type: 
  Country: None (occurrence: None)
  Receive Date: 20100406
  Receipt Date: 20100325
  Transmission Date: 20101027
  Serious: Yes (Other)
  Sender: FDA-Public Use
  Company Number: JP-PFIZER INC-2010040975

PATIENT
  Age: 78 Year
  Sex: Male

DRUGS (1)
  1. CELECOX [Suspect]
     Dosage: 100 MG DAILY
     Route: 048

REACTIONS (2)
  - DRUG ERUPTION [None]
  - SHOCK [None]
